FAERS Safety Report 23476944 (Version 1)
Quarter: 2024Q1

REPORT INFORMATION
  Report Type: Report from Study
  Country: US (occurrence: US)
  Receive Date: 20240204
  Receipt Date: 20240204
  Transmission Date: 20240410
  Serious: No
  Sender: FDA-Public Use
  Company Number: US-EXELIXIS-CABO-23064858

PATIENT
  Sex: Female

DRUGS (22)
  1. CABOMETYX [Suspect]
     Active Substance: CABOZANTINIB S-MALATE
     Indication: Renal cancer
     Dosage: 40 MG, QD (TWO 20 MG TABLETS ONCE A DAY)
     Route: 048
     Dates: start: 20230531
  2. CABOMETYX [Suspect]
     Active Substance: CABOZANTINIB S-MALATE
     Dosage: 20 MG, QD
     Route: 048
  3. CABOMETYX [Suspect]
     Active Substance: CABOZANTINIB S-MALATE
     Dosage: 40 MG, QD (TWO 20 MG TABLETS ONCE A DAY)
     Route: 048
  4. CABOMETYX [Suspect]
     Active Substance: CABOZANTINIB S-MALATE
     Dosage: 20 MG, QD
     Route: 048
  5. OPDIVO [Concomitant]
     Active Substance: NIVOLUMAB
  6. BETAMETHASONE [Concomitant]
     Active Substance: BETAMETHASONE\BETAMETHASONE DIPROPIONATE
  7. BUPROPION HYDROCHLORIDE [Concomitant]
     Active Substance: BUPROPION HYDROCHLORIDE
  8. CARISOPRODOL [Concomitant]
     Active Substance: CARISOPRODOL
  9. ESTRACE [Concomitant]
     Active Substance: ESTRADIOL
  10. ESTRADIOL [Concomitant]
     Active Substance: ESTRADIOL
  11. FISH OIL [Concomitant]
     Active Substance: FISH OIL
  12. GABAPENTIN [Concomitant]
     Active Substance: GABAPENTIN
  13. HYDROCORTISONE [Concomitant]
     Active Substance: HYDROCORTISONE
  14. IPRATROPIUM [Concomitant]
     Active Substance: IPRATROPIUM
  15. VITAMINS [Concomitant]
     Active Substance: VITAMINS
  16. ONDANSETRON [Concomitant]
     Active Substance: ONDANSETRON
  17. PRAMIPEXOLE [Concomitant]
     Active Substance: PRAMIPEXOLE\PRAMIPEXOLE DIHYDROCHLORIDE
  18. ROSUVASTATIN [Concomitant]
     Active Substance: ROSUVASTATIN
  19. SOLU-CORTEF [Concomitant]
     Active Substance: HYDROCORTISONE SODIUM SUCCINATE
  20. TRAZODONE HCL [Concomitant]
     Active Substance: TRAZODONE HYDROCHLORIDE
  21. VALACYCLOVIR [Concomitant]
     Active Substance: VALACYCLOVIR HYDROCHLORIDE
  22. VITAMIN D3 [Concomitant]
     Active Substance: CHOLECALCIFEROL

REACTIONS (12)
  - Glossitis [Not Recovered/Not Resolved]
  - Tongue coated [Not Recovered/Not Resolved]
  - Muscular weakness [Not Recovered/Not Resolved]
  - Myositis [Not Recovered/Not Resolved]
  - Back pain [Not Recovered/Not Resolved]
  - Arthralgia [Not Recovered/Not Resolved]
  - Abdominal pain upper [Not Recovered/Not Resolved]
  - Fatigue [Unknown]
  - Ingrowing nail [Unknown]
  - Dyspnoea [Unknown]
  - White blood cell count decreased [Not Recovered/Not Resolved]
  - Incorrect dose administered [Unknown]
